FAERS Safety Report 20837203 (Version 2)
Quarter: 2022Q2

REPORT INFORMATION
  Report Type: Spontaneous
  Country: US (occurrence: US)
  Receive Date: 20220517
  Receipt Date: 20220601
  Transmission Date: 20220720
  Serious: Yes (Other)
  Sender: FDA-Public Use
  Company Number: US-NOVARTISPH-NVSC2022US107447

PATIENT
  Sex: Male

DRUGS (1)
  1. COSENTYX [Suspect]
     Active Substance: SECUKINUMAB
     Indication: Psoriasis
     Dosage: UNK
     Route: 065

REACTIONS (8)
  - Throat cancer [Unknown]
  - Fatigue [Unknown]
  - Stomatitis [Unknown]
  - Nasal discomfort [Unknown]
  - Chapped lips [Unknown]
  - Arthralgia [Unknown]
  - Irritable bowel syndrome [Unknown]
  - Feeling abnormal [Unknown]

NARRATIVE: CASE EVENT DATE: 20220201
